FAERS Safety Report 24260908 (Version 5)
Quarter: 2024Q3

REPORT INFORMATION
  Report Type: Spontaneous
  Country: US (occurrence: US)
  Receive Date: 20240828
  Receipt Date: 20240925
  Transmission Date: 20241017
  Serious: Yes (Death, Other)
  Sender: MERCK
  Company Number: US-009507513-2408USA005314

PATIENT
  Sex: Female

DRUGS (4)
  1. KEYTRUDA [Suspect]
     Active Substance: PEMBROLIZUMAB
     Indication: Renal cell carcinoma
     Dosage: 200 MILLIGRAM, Q3W
     Route: 042
     Dates: start: 20210119, end: 20210728
  2. AXITINIB [Suspect]
     Active Substance: AXITINIB
     Indication: Renal cell carcinoma
     Dosage: 5 MILLIGRAM, BID
     Route: 048
     Dates: start: 20210119, end: 20210127
  3. AXITINIB [Suspect]
     Active Substance: AXITINIB
     Dosage: 2 MG BID, QD 2 WEEKS ON 1 WEEK OFF
     Route: 048
     Dates: start: 20210211, end: 20210414
  4. AXITINIB [Suspect]
     Active Substance: AXITINIB
     Dosage: 2 MILLIGRAM, QD, 2 WEEKS ON 1 WEEK OFF
     Route: 048
     Dates: start: 20210505, end: 20210728

REACTIONS (5)
  - Malignant neoplasm progression [Fatal]
  - Decreased appetite [Not Recovered/Not Resolved]
  - Weight decreased [Recovered/Resolved]
  - Decreased appetite [Not Recovered/Not Resolved]
  - Weight decreased [Recovered/Resolved]

NARRATIVE: CASE EVENT DATE: 20210127
